FAERS Safety Report 8383833-9 (Version None)
Quarter: 2012Q1

REPORT INFORMATION
  Report Type: 
  Country: None (occurrence: None)
  Receive Date: 20120323
  Receipt Date: 20110307
  Transmission Date: 20120608
  Serious: Yes (Other)
  Sender: FDA-Public Use
  Company Number: 163-21880-11030776

PATIENT
  Sex: Male

DRUGS (4)
  1. ASPIRIN [Concomitant]
  2. REVLIMID [Suspect]
     Indication: MULTIPLE MYELOMA
     Dosage: 12.5 MG, 1 UB 2 D, PO, 10 MG, DAILY X 21 DAYS, PO
     Route: 048
     Dates: start: 20110301
  3. REVLIMID [Suspect]
     Indication: MULTIPLE MYELOMA
     Dosage: 12.5 MG, 1 UB 2 D, PO, 10 MG, DAILY X 21 DAYS, PO
     Route: 048
     Dates: start: 20101101
  4. DEXAMETHASONE [Concomitant]

REACTIONS (1)
  - PLATELET COUNT DECREASED [None]
